FAERS Safety Report 24593965 (Version 4)
Quarter: 2025Q1

REPORT INFORMATION
  Report Type: Spontaneous
  Country: US (occurrence: US)
  Receive Date: 20241108
  Receipt Date: 20250115
  Transmission Date: 20250409
  Serious: No
  Sender: PFIZER
  Company Number: US-PFIZER INC-202400293641

PATIENT
  Age: 79 Year
  Sex: Female
  Weight: 65.77 kg

DRUGS (1)
  1. NURTEC ODT [Suspect]
     Active Substance: RIMEGEPANT SULFATE

REACTIONS (6)
  - Poor quality product administered [Unknown]
  - Product taste abnormal [Unknown]
  - Product physical issue [Unknown]
  - Headache [Unknown]
  - Overdose [Unknown]
  - Drug ineffective [Unknown]
